FAERS Safety Report 24643720 (Version 1)
Quarter: 2024Q4

REPORT INFORMATION
  Report Type: Report from Study
  Country: US (occurrence: US)
  Receive Date: 20241120
  Receipt Date: 20241120
  Transmission Date: 20250115
  Serious: Yes (Hospitalization, Other)
  Sender: ABBVIE
  Company Number: US-ABBVIE-5984663

PATIENT
  Age: 70 Year
  Sex: Female

DRUGS (2)
  1. CREON [Suspect]
     Active Substance: PANCRELIPASE AMYLASE\PANCRELIPASE LIPASE\PANCRELIPASE PROTEASE
     Indication: Pancreatic disorder
     Dosage: UNKNOWN,?FREQUENCY TEXT: 1 EACH MEAL 1 EACH SNACK
     Route: 048
     Dates: start: 202409
  2. CREON [Suspect]
     Active Substance: PANCRELIPASE AMYLASE\PANCRELIPASE LIPASE\PANCRELIPASE PROTEASE
     Indication: Pancreatic disorder
     Dosage: FORM STRENGTH: 12000 UNIT,?FREQUENCY TEXT: 1 EACH 1 SNACK
     Route: 048
     Dates: start: 20230205, end: 2024

REACTIONS (5)
  - Hernia [Recovered/Resolved]
  - Wound infection [Not Recovered/Not Resolved]
  - Lethargy [Not Recovered/Not Resolved]
  - Volvulus [Recovered/Resolved]
  - Malnutrition [Not Recovered/Not Resolved]

NARRATIVE: CASE EVENT DATE: 20240901
